FAERS Safety Report 8321966-3 (Version None)
Quarter: 2012Q2

REPORT INFORMATION
  Report Type: 
  Country: None (occurrence: None)
  Receive Date: 20120426
  Receipt Date: 20120418
  Transmission Date: 20120825
  Serious: Yes (Hospitalization)
  Sender: FDA-Public Use
  Company Number: 2012SP020446

PATIENT
  Sex: Female

DRUGS (3)
  1. REMERON [Suspect]
     Indication: DEPRESSION
     Dosage: 1 DF; QD; PO
     Route: 048
     Dates: end: 20120102
  2. ZOLPIDEM TARTRATE [Suspect]
     Dosage: 1 DF; QD; PO
     Route: 048
     Dates: end: 20120102
  3. LEXOTANIL (BROMAZEPAM) [Suspect]
     Indication: DEPRESSION
     Dosage: 3 MG; BID; PO
     Route: 048
     Dates: end: 20120102

REACTIONS (9)
  - DELIRIUM [None]
  - GENERAL PHYSICAL CONDITION ABNORMAL [None]
  - NAUSEA [None]
  - WITHDRAWAL SYNDROME [None]
  - AGITATION [None]
  - PERSECUTORY DELUSION [None]
  - MANIA [None]
  - TREMOR [None]
  - DISORIENTATION [None]
